FAERS Safety Report 6238064-5 (Version None)
Quarter: 2009Q2

REPORT INFORMATION
  Report Type: 
  Country: None (occurrence: None)
  Receive Date: 20090622
  Receipt Date: 20090618
  Transmission Date: 20091009
  Serious: Yes (Hospitalization)
  Sender: FDA-Public Use
  Company Number: US-BRISTOL-MYERS SQUIBB COMPANY-14670616

PATIENT
  Age: 67 Year
  Sex: Female
  Weight: 88 kg

DRUGS (15)
  1. TAXOL [Suspect]
     Indication: BREAST CANCER
     Dosage: TAKEN ON 24MAY2009
     Route: 042
     Dates: start: 20090514, end: 20090514
  2. MULTI-VITAMIN [Concomitant]
     Dosage: PANTHENOL,RETINOL,RIBOFLAVIN,THIAMINE HYDROCHLORIDE
     Dates: start: 20061116
  3. ALBUTEROL [Concomitant]
     Dates: start: 20061110
  4. SINGULAIR [Concomitant]
     Dates: start: 20081110
  5. SPIRONOLACTONE/HYDROCHLOROTHIAZIDE [Concomitant]
     Dates: start: 20070511
  6. SPIRIVA [Concomitant]
     Dates: start: 20081124
  7. ASPIRIN [Concomitant]
     Dates: start: 20081124
  8. KYTRIL [Concomitant]
     Dates: start: 20090514
  9. MICRO-K [Concomitant]
     Dates: start: 20070511
  10. SKELAXIN [Concomitant]
     Dates: start: 20070511
  11. FUROSEMIDE [Concomitant]
     Dates: start: 20070511
  12. GABAPENTIN [Concomitant]
     Dates: start: 20061116
  13. ATIVAN [Concomitant]
     Dates: start: 20061110
  14. MOTRIN [Concomitant]
     Dates: start: 20061110
  15. COMPAZINE [Concomitant]
     Dates: start: 20090514

REACTIONS (1)
  - DYSPNOEA [None]
